FAERS Safety Report 23752749 (Version 2)
Quarter: 2024Q2

REPORT INFORMATION
  Report Type: Spontaneous
  Country: AT (occurrence: AT)
  Receive Date: 20240417
  Receipt Date: 20240507
  Transmission Date: 20240715
  Serious: Yes (Other)
  Sender: FDA-Public Use
  Company Number: AT-ABBVIE-5708502

PATIENT
  Age: 46 Year
  Sex: Female

DRUGS (7)
  1. ADALIMUMAB [Suspect]
     Active Substance: ADALIMUMAB\ISOPROPYL ALCOHOL
     Indication: Arthritis
     Dosage: UNK, Q2W
     Route: 065
  2. ADALIMUMAB [Suspect]
     Active Substance: ADALIMUMAB\ISOPROPYL ALCOHOL
     Indication: Spondylitis
  3. HUMIRA [Suspect]
     Active Substance: ADALIMUMAB
     Indication: Product used for unknown indication
     Route: 058
  4. CERTOLIZUMAB PEGOL [Concomitant]
     Active Substance: CERTOLIZUMAB PEGOL
     Indication: Product used for unknown indication
     Route: 065
  5. CERTOLIZUMAB PEGOL [Concomitant]
     Active Substance: CERTOLIZUMAB PEGOL
     Indication: Product used for unknown indication
     Route: 065
  6. IXEKIZUMAB [Concomitant]
     Active Substance: IXEKIZUMAB
     Indication: Product used for unknown indication
     Dosage: 160 MG
     Route: 065
  7. IXEKIZUMAB [Concomitant]
     Active Substance: IXEKIZUMAB
     Dosage: 160 MG
     Route: 065

REACTIONS (13)
  - Shoulder operation [Unknown]
  - Shoulder operation [Unknown]
  - Hip fracture [Recovering/Resolving]
  - Dermatitis psoriasiform [Unknown]
  - Arthritis [Recovering/Resolving]
  - Spinal pain [Unknown]
  - Musculoskeletal disorder [Recovering/Resolving]
  - Psoriatic arthropathy [Unknown]
  - Skin exfoliation [Unknown]
  - Spondylitis [Recovering/Resolving]
  - Muscle disorder [Recovering/Resolving]
  - Arthralgia [Unknown]
  - Musculoskeletal discomfort [Unknown]
